FAERS Safety Report 5532914-3 (Version None)
Quarter: 2007Q4

REPORT INFORMATION
  Report Type: 
  Country: None (occurrence: None)
  Receive Date: 20071120
  Receipt Date: 20070809
  Transmission Date: 20080405
  Serious: No
  Sender: FDA-Public Use
  Company Number: WAES 0706USA03802

PATIENT
  Age: 55 Year
  Sex: Male
  Weight: 96.1626 kg

DRUGS (2)
  1. JANUVIA [Suspect]
     Indication: TYPE 2 DIABETES MELLITUS
     Dosage: 100 MG/DAILY/PO
     Route: 048
     Dates: start: 20061213, end: 20070227
  2. THERAPY UNSPECIFIED [Concomitant]

REACTIONS (4)
  - ABDOMINAL PAIN LOWER [None]
  - BLOOD LACTIC ACID INCREASED [None]
  - NAUSEA [None]
  - VOMITING [None]
